FAERS Safety Report 16767024 (Version 4)
Quarter: 2021Q2

REPORT INFORMATION
  Report Type: Spontaneous
  Country: US (occurrence: US)
  Receive Date: 20190903
  Receipt Date: 20210614
  Transmission Date: 20210716
  Serious: No
  Sender: FDA-Public Use
  Company Number: US-PFIZER INC-2016354301

PATIENT
  Age: 30 Year
  Sex: Female

DRUGS (1)
  1. LYRICA [Suspect]
     Active Substance: PREGABALIN
     Dosage: 400 MG, (FOUR 100 (MG) CAPSULES)

REACTIONS (4)
  - Intentional product use issue [Unknown]
  - Pain in extremity [Unknown]
  - Spinal pain [Unknown]
  - Pain [Unknown]
